FAERS Safety Report 6518743-2 (Version None)
Quarter: 2009Q4

REPORT INFORMATION
  Report Type: 
  Country: None (occurrence: None)
  Receive Date: 20091228
  Receipt Date: 20091214
  Transmission Date: 20100525
  Serious: Yes (Other)
  Sender: FDA-Public Use
  Company Number: PHHY2009AU55268

PATIENT
  Sex: Female

DRUGS (1)
  1. EXFORGE [Suspect]
     Indication: HYPERTENSION
     Dosage: UNK
     Route: 048
     Dates: start: 20091130, end: 20091201

REACTIONS (6)
  - FLUSHING [None]
  - NAUSEA [None]
  - POLLAKIURIA [None]
  - SLEEP DISORDER [None]
  - SYNCOPE [None]
  - WEIGHT DECREASED [None]
